FAERS Safety Report 13988640 (Version 1)
Quarter: 2017Q3

REPORT INFORMATION
  Report Type: Spontaneous
  Country: US (occurrence: US)
  Receive Date: 20170919
  Receipt Date: 20170919
  Transmission Date: 20171128
  Serious: No
  Sender: FDA-Public Use
  Company Number: US-AMNEAL PHARMACEUTICALS-2016AMN00424

PATIENT
  Sex: Male

DRUGS (1)
  1. GABAPENTIN. [Suspect]
     Active Substance: GABAPENTIN
     Dosage: ONE TABLET IN THE MORNING AND IN THE EVENING

REACTIONS (2)
  - Depression [Unknown]
  - Agitation [Unknown]
